FAERS Safety Report 8335291 (Version 5)
Quarter: 2013Q2

REPORT INFORMATION
  Report Type: Spontaneous
  Country: US (occurrence: US)
  Receive Date: 20120113
  Receipt Date: 20130628
  Transmission Date: 20140414
  Serious: No
  Sender: FDA-Public Use
  Company Number: US-BIOGENIDEC-2012BI000971

PATIENT
  Age: 57 Year
  Sex: Male

DRUGS (3)
  1. TYSABRI [Suspect]
     Indication: MULTIPLE SCLEROSIS
     Route: 042
     Dates: start: 20111205, end: 20120531
  2. BENADRYL [Concomitant]
     Indication: PREMEDICATION
  3. TYLENOL [Concomitant]
     Indication: PREMEDICATION
     Route: 048

REACTIONS (4)
  - Hypersensitivity [Recovered/Resolved]
  - Injection site pain [Not Recovered/Not Resolved]
  - Asthenia [Not Recovered/Not Resolved]
  - Fatigue [Not Recovered/Not Resolved]
